FAERS Safety Report 6761267-8 (Version None)
Quarter: 2010Q2

REPORT INFORMATION
  Report Type: 
  Country: None (occurrence: None)
  Receive Date: 20100608
  Receipt Date: 20100527
  Transmission Date: 20101027
  Serious: Yes (Hospitalization, Other)
  Sender: FDA-Public Use
  Company Number: FR-ELI_LILLY_AND_COMPANY-FR201003001298

PATIENT
  Age: 62 Year
  Sex: Male

DRUGS (5)
  1. ZYPREXA [Suspect]
     Dosage: 10 MG, DAILY (1/D)
     Route: 048
     Dates: end: 20100226
  2. IMOVANE [Concomitant]
     Indication: INSOMNIA
     Dosage: 7.5 MG, UNK
     Route: 048
  3. TEGRETOL [Concomitant]
     Indication: DEPRESSION
     Dosage: 400 MG, 2/D
     Route: 048
  4. LEPTICUR [Concomitant]
     Dosage: 10 MG, DAILY (1/D)
     Route: 048
  5. SERESTA [Concomitant]
     Dosage: 90 MG, DAILY (1/D)
     Route: 048
     Dates: start: 20100219

REACTIONS (3)
  - BRONCHOPNEUMONIA [None]
  - PARKINSONISM [None]
  - RHABDOMYOLYSIS [None]
